FAERS Safety Report 5305921-3 (Version None)
Quarter: 2007Q2

REPORT INFORMATION
  Report Type: 
  Country: None (occurrence: None)
  Receive Date: 20070424
  Receipt Date: 20070423
  Transmission Date: 20071010
  Serious: Yes (Other)
  Sender: FDA-Public Use
  Company Number: JP-JPN-A200701866

PATIENT
  Age: 69 Year
  Sex: Male

DRUGS (5)
  1. VALTREX [Suspect]
     Indication: DRUG USE FOR UNKNOWN INDICATION
     Route: 048
  2. URINORM [Concomitant]
     Route: 048
  3. RENIVACE [Concomitant]
     Route: 048
  4. AMARYL [Concomitant]
     Route: 048
  5. MELBIN [Concomitant]
     Route: 048

REACTIONS (1)
  - GASTRIC ULCER [None]
